FAERS Safety Report 17258701 (Version 1)
Quarter: 2019Q4

REPORT INFORMATION
  Report Type: Spontaneous
  Country: US (occurrence: US)
  Receive Date: 20191217
  Receipt Date: 20191217
  Transmission Date: 20200122
  Serious: Yes (Hospitalization)
  Sender: FDA-Public Use
  Company Number: None

PATIENT
  Age: 51 Year
  Sex: Female

DRUGS (1)
  1. BOSENTAN 125MG TABLETS 60/BO (TEVA) [Suspect]
     Active Substance: BOSENTAN
     Indication: PULMONARY ARTERIAL HYPERTENSION
     Route: 048
     Dates: start: 20190625, end: 20191216

REACTIONS (9)
  - Cough [None]
  - Hypotension [None]
  - Pulmonary congestion [None]
  - Presyncope [None]
  - Oropharyngeal pain [None]
  - Palpitations [None]
  - Respiratory failure [None]
  - Rhinorrhoea [None]
  - Hyperhidrosis [None]

NARRATIVE: CASE EVENT DATE: 20191203
